FAERS Safety Report 9893795 (Version 3)
Quarter: 2014Q2

REPORT INFORMATION
  Report Type: Spontaneous
  Country: GB (occurrence: GB)
  Receive Date: 20140213
  Receipt Date: 20140402
  Transmission Date: 20141212
  Serious: Yes (Hospitalization, Other)
  Sender: FDA-Public Use
  Company Number: PHFR2014GB001444

PATIENT
  Age: 67 Year
  Sex: Female

DRUGS (3)
  1. CLOZARIL [Suspect]
     Indication: SCHIZOPHRENIA
     Dosage: UNK
     Route: 048
     Dates: start: 20010905
  2. CLOZARIL [Suspect]
     Indication: PSYCHOTIC DISORDER
     Dosage: VARIABLE DOSE
     Route: 048
  3. CLOZARIL [Suspect]
     Dosage: (DOSE INCREASED BY 50 MG)
     Dates: start: 20140324

REACTIONS (6)
  - Cellulitis [Recovered/Resolved]
  - White blood cell count increased [Unknown]
  - Neutrophil count increased [Unknown]
  - Sepsis [Unknown]
  - Feeling abnormal [Unknown]
  - Body temperature increased [Unknown]
